FAERS Safety Report 13916708 (Version 1)
Quarter: 2017Q3

REPORT INFORMATION
  Report Type: Spontaneous
  Country: US (occurrence: US)
  Receive Date: 20170829
  Receipt Date: 20170829
  Transmission Date: 20171127
  Serious: Yes (Other)
  Sender: FDA-Public Use
  Company Number: US-009507513-1708USA010468

PATIENT
  Sex: Female
  Weight: 68.03 kg

DRUGS (3)
  1. PROVENTIL [Concomitant]
     Active Substance: ALBUTEROL
     Dosage: UNK
  2. SINGULAIR [Concomitant]
     Active Substance: MONTELUKAST SODIUM
     Dosage: UNK
     Route: 048
  3. NEXPLANON [Suspect]
     Active Substance: ETONOGESTREL
     Indication: CONTRACEPTION
     Dosage: UNK
     Route: 059
     Dates: start: 20160629

REACTIONS (2)
  - Chloasma [Not Recovered/Not Resolved]
  - Seizure [Not Recovered/Not Resolved]
